FAERS Safety Report 14633552 (Version 1)
Quarter: 2018Q1

REPORT INFORMATION
  Report Type: Spontaneous
  Country: GB (occurrence: GB)
  Receive Date: 20180314
  Receipt Date: 20180314
  Transmission Date: 20180509
  Serious: Yes (Congenital Anomaly)
  Sender: FDA-Public Use
  Company Number: GB-BAXTER-2018BAX007489

PATIENT

DRUGS (2)
  1. CYCLIZINE [Suspect]
     Active Substance: CYCLIZINE
     Indication: FOETAL EXPOSURE DURING PREGNANCY
     Dosage: ADMINISTERED TO MOTHER IN THE PAST FOR HYPEREMESIS GRAVIDARUM
     Route: 064
  2. ONDANSETRON 2MG/ML SOLUTION FOR INJECTION [Suspect]
     Active Substance: ONDANSETRON
     Indication: FOETAL EXPOSURE DURING PREGNANCY
     Dosage: ADMINISTERED TO MOTHER IN THE PAST FOR HYPEREMESIS GRAVIDARUM
     Route: 064

REACTIONS (2)
  - Congenital hand malformation [Unknown]
  - Foetal exposure during pregnancy [Recovered/Resolved]
